FAERS Safety Report 7178475-7 (Version None)
Quarter: 2010Q4

REPORT INFORMATION
  Report Type: 
  Country: None (occurrence: None)
  Receive Date: 20101220
  Receipt Date: 20101217
  Transmission Date: 20110411
  Serious: Yes (Death)
  Sender: FDA-Public Use
  Company Number: FR-MERCK-1011FRA00098

PATIENT
  Age: 65 Year
  Sex: Male
  Weight: 78 kg

DRUGS (5)
  1. JANUVIA [Suspect]
     Indication: TYPE 2 DIABETES MELLITUS
     Route: 048
     Dates: start: 20090101, end: 20100101
  2. METFORMIN [Concomitant]
     Indication: TYPE 2 DIABETES MELLITUS
     Route: 048
     Dates: end: 20100101
  3. METFORMIN [Concomitant]
     Route: 048
     Dates: start: 20100101, end: 20100101
  4. REPAGLINIDE [Concomitant]
     Indication: TYPE 2 DIABETES MELLITUS
     Route: 048
     Dates: end: 20100101
  5. CLOPIDOGREL BISULFATE [Concomitant]
     Indication: ARTERITIS
     Route: 048
     Dates: start: 20050201, end: 20100101

REACTIONS (1)
  - CARDIAC ARREST [None]
